FAERS Safety Report 6684170-0 (Version None)
Quarter: 2010Q2

REPORT INFORMATION
  Report Type: 
  Country: None (occurrence: None)
  Receive Date: 20100416
  Receipt Date: 20100406
  Transmission Date: 20101027
  Serious: Yes (Other)
  Sender: FDA-Public Use
  Company Number: US-PFIZER INC-2010024300

PATIENT
  Sex: Female
  Weight: 92.079 kg

DRUGS (18)
  1. LYRICA [Suspect]
     Indication: FIBROMYALGIA
     Dosage: 50 MG, 2X/DAY
     Route: 048
     Dates: start: 20080101
  2. LYRICA [Suspect]
     Indication: NEUROPATHY PERIPHERAL
     Dosage: 75 MG, 2X/DAY
     Route: 048
  3. LYRICA [Suspect]
     Dosage: 150 MG, 2X/DAY
     Dates: end: 20100304
  4. ELMIRON [Concomitant]
     Indication: BLADDER DISCOMFORT
     Dosage: 100 MG, 3X/DAY
     Route: 048
  5. LEVOTHROID [Concomitant]
     Indication: HYPOTHYROIDISM
     Dosage: 100 UG, 1X/DAY
     Route: 048
  6. TRIAMTERENE AND HYDROCHLOROTHIAZIDE [Concomitant]
     Indication: HYPERTENSION
     Dosage: 37.5/25 ONCE DAILY
     Route: 048
  7. VALSARTAN [Concomitant]
     Indication: HYPERTENSION
     Dosage: 160 MG, 1X/DAY
     Route: 048
  8. ULTRAM [Concomitant]
     Indication: PAIN
     Dosage: 50 MG, 4-6 TIMES A DAY
     Route: 048
  9. ULTRAM [Concomitant]
     Indication: FIBROMYALGIA
  10. PREMARIN [Concomitant]
     Indication: MENOPAUSE
     Dosage: 0.3 MG, ONCE DAILY FOR 5 DAYS IN A WEEK, THEN OFF OF IT FOR 6 DAYS
     Route: 048
  11. PREMARIN [Concomitant]
     Indication: HOT FLUSH
  12. PREMARIN [Concomitant]
     Indication: HYPERHIDROSIS
  13. RANITIDINE [Concomitant]
     Indication: ABDOMINAL DISCOMFORT
     Dosage: 150 MG, AS NEEDED
     Route: 048
  14. MELOXICAM [Concomitant]
     Indication: PAIN
     Dosage: 15 MG, 1X/DAY
     Route: 048
  15. MELOXICAM [Concomitant]
     Indication: SPONDYLITIS
  16. MELOXICAM [Concomitant]
     Indication: ARTHRITIS
  17. FLEXERIL [Concomitant]
     Dosage: UNK
  18. DYAZIDE [Concomitant]
     Dosage: UNK

REACTIONS (3)
  - DEPRESSED MOOD [None]
  - SUICIDAL IDEATION [None]
  - WITHDRAWAL SYNDROME [None]
